FAERS Safety Report 7972610-6 (Version None)
Quarter: 2011Q4

REPORT INFORMATION
  Report Type: 
  Country: None (occurrence: None)
  Receive Date: 20111213
  Receipt Date: 20111027
  Transmission Date: 20120403
  Serious: Yes (Hospitalization)
  Sender: FDA-Public Use
  Company Number: US-BAYER-2011-056662

PATIENT
  Age: 28 Year
  Sex: Female
  Weight: 83.9 kg

DRUGS (9)
  1. YASMIN [Suspect]
     Indication: PREMENSTRUAL SYNDROME
  2. IBUPROFEN [Concomitant]
     Dosage: UNK
     Dates: start: 20040101
  3. YAZ [Suspect]
     Indication: CONTRACEPTION
     Dosage: UNK
     Route: 048
     Dates: start: 20080301, end: 20081001
  4. SERTRALINE HYDROCHLORIDE [Concomitant]
     Dosage: UNK
     Dates: start: 20090101
  5. DROSPIRENONE AND ETHINYL ESTRADIOL [Suspect]
     Dosage: UNK
     Route: 048
     Dates: start: 20081101, end: 20090201
  6. YASMIN [Suspect]
     Indication: CONTRACEPTION
     Dosage: UNK
     Route: 048
     Dates: start: 20090201, end: 20090801
  7. ASCORBIC ACID [Concomitant]
     Dosage: UNK
     Dates: start: 20040101
  8. YAZ [Suspect]
     Indication: PREMENSTRUAL SYNDROME
  9. DIURETICS [Concomitant]
     Dosage: UNK
     Dates: start: 20040101

REACTIONS (6)
  - CHOLECYSTECTOMY [None]
  - CHOLECYSTITIS CHRONIC [None]
  - INJURY [None]
  - VOMITING [None]
  - BILIARY DYSKINESIA [None]
  - PAIN [None]
